FAERS Safety Report 14549496 (Version 1)
Quarter: 2018Q1

REPORT INFORMATION
  Report Type: Spontaneous
  Country: KR (occurrence: KR)
  Receive Date: 20180219
  Receipt Date: 20180219
  Transmission Date: 20180509
  Serious: Yes (Other)
  Sender: FDA-Public Use
  Company Number: KR-ALKEM LABORATORIES LIMITED-KR-ALKEM-2017-01166

PATIENT
  Age: 21 Year
  Sex: Male

DRUGS (8)
  1. ARIPIPRAZOLE. [Suspect]
     Active Substance: ARIPIPRAZOLE
     Indication: CONDUCT DISORDER
     Dosage: 5 MG, UNK
     Route: 065
  2. QUETIAPINE FUMARATE. [Suspect]
     Active Substance: QUETIAPINE FUMARATE
     Indication: CONDUCT DISORDER
     Dosage: 800 MG, UNK
     Route: 065
  3. OLANZAPINE. [Suspect]
     Active Substance: OLANZAPINE
     Indication: CONDUCT DISORDER
     Dosage: 10 MG, UNK
     Route: 065
  4. OLANZAPINE. [Suspect]
     Active Substance: OLANZAPINE
     Dosage: 5 MG, UNK
     Route: 065
  5. RISPERIDONE. [Suspect]
     Active Substance: RISPERIDONE
     Indication: CONDUCT DISORDER
     Dosage: 2 MG, UNK
     Route: 065
  6. VALOPROIC ACID [Concomitant]
     Dosage: 1000 MG, UNK
     Route: 065
  7. VALOPROIC ACID [Concomitant]
     Indication: CONDUCT DISORDER
     Dosage: 750 MG, UNK
     Route: 065
  8. LITHIUM. [Concomitant]
     Active Substance: LITHIUM
     Indication: CONDUCT DISORDER
     Dosage: 600 MG, UNK
     Route: 065

REACTIONS (1)
  - Neutropenia [Recovering/Resolving]
